FAERS Safety Report 4367280-2 (Version None)
Quarter: 2004Q2

REPORT INFORMATION
  Report Type: 
  Country: None (occurrence: None)
  Receive Date: 20040524
  Receipt Date: 20040513
  Transmission Date: 20050107
  Serious: Yes (Other)
  Sender: FDA-Public Use
  Company Number: 220024K04USA

PATIENT
  Age: 16 Year
  Sex: Male
  Weight: 56.8 kg

DRUGS (1)
  1. SAIZEN [Suspect]
     Indication: GROWTH HORMONE DEFICIENCY
     Dosage: 2.8 MG, 1 IN 1 DAYS, SUBCUTANEOUS
     Route: 058
     Dates: start: 20040329

REACTIONS (3)
  - ADJUSTMENT DISORDER [None]
  - INJECTION SITE HAEMORRHAGE [None]
  - SUICIDAL IDEATION [None]
